FAERS Safety Report 11720220 (Version 2)
Quarter: 2015Q4

REPORT INFORMATION
  Report Type: Spontaneous
  Country: US (occurrence: US)
  Receive Date: 20151110
  Receipt Date: 20151113
  Transmission Date: 20160304
  Serious: No
  Sender: FDA-Public Use
  Company Number: US-HORIZON-ACT-0190-2015

PATIENT
  Age: 51 Year
  Sex: Female

DRUGS (18)
  1. FLOVENT [Concomitant]
     Active Substance: FLUTICASONE PROPIONATE
  2. ADEMPAS [Concomitant]
     Active Substance: RIOCIGUAT
  3. TUDORZA PRESSAIR [Concomitant]
     Active Substance: ACLIDINIUM BROMIDE
  4. ACTIMMUNE [Suspect]
     Active Substance: INTERFERON GAMMA-1B
     Indication: CHRONIC GRANULOMATOUS DISEASE
     Dosage: 82 ?G THREE TIMES WEEKLY
     Route: 058
     Dates: start: 201411
  5. MONTELUKAST [Concomitant]
     Active Substance: MONTELUKAST SODIUM
  6. SEROQUEL [Concomitant]
     Active Substance: QUETIAPINE FUMARATE
  7. PERCOCET [Concomitant]
     Active Substance: ACETAMINOPHEN\OXYCODONE HYDROCHLORIDE
  8. ADVAIR DISKUS [Concomitant]
     Active Substance: FLUTICASONE PROPIONATE\SALMETEROL XINAFOATE
  9. GABAPENTIN. [Concomitant]
     Active Substance: GABAPENTIN
  10. ALBUTEROL. [Concomitant]
     Active Substance: ALBUTEROL
  11. ULTRAM [Concomitant]
     Active Substance: TRAMADOL HYDROCHLORIDE
  12. AZATHIOPRINE. [Concomitant]
     Active Substance: AZATHIOPRINE
  13. SPIRIVA [Concomitant]
     Active Substance: TIOTROPIUM BROMIDE MONOHYDRATE
  14. LEVOTHYROXINE SODIUM. [Concomitant]
     Active Substance: LEVOTHYROXINE SODIUM
  15. OMEPRAZOLE. [Concomitant]
     Active Substance: OMEPRAZOLE
  16. WARFARIN [Concomitant]
     Active Substance: WARFARIN
  17. JANUVIA [Concomitant]
     Active Substance: SITAGLIPTIN PHOSPHATE
  18. TIZANIDINE. [Concomitant]
     Active Substance: TIZANIDINE

REACTIONS (1)
  - Weight decreased [Unknown]
